FAERS Safety Report 7715563-8 (Version None)
Quarter: 2011Q3

REPORT INFORMATION
  Report Type: 
  Country: None (occurrence: None)
  Receive Date: 20110810
  Receipt Date: 20110322
  Transmission Date: 20111222
  Serious: Yes (Other)
  Sender: FDA-Public Use
  Company Number: 2011AT000105

PATIENT
  Age: 67 Year
  Sex: Male

DRUGS (2)
  1. EDEX [Suspect]
     Dosage: 20 UG;ICAN 15 UG;ICAN
  2. INSUNLIN [Concomitant]

REACTIONS (1)
  - ERECTION INCREASED [None]
